FAERS Safety Report 24314030 (Version 1)
Quarter: 2024Q3

REPORT INFORMATION
  Report Type: Other
  Country: US (occurrence: US)
  Receive Date: 20240912
  Receipt Date: 20240912
  Transmission Date: 20241017
  Serious: No
  Sender: SIGMA TAU
  Company Number: US-LEADIANT BIOSCIENCES, INC.-2024LBI000236

PATIENT
  Sex: Male

DRUGS (1)
  1. MATULANE [Suspect]
     Active Substance: PROCARBAZINE HYDROCHLORIDE
     Indication: Mantle cell lymphoma
     Dosage: 50 MILLIGRAMS, 1 CAPSULE (50 MG TOTAL) EVERY OTHER DAY BEFORE BED
     Route: 048
     Dates: start: 20240522

REACTIONS (2)
  - Off label use [Unknown]
  - Drug ineffective [Unknown]
